FAERS Safety Report 23267235 (Version 1)
Quarter: 2023Q4

REPORT INFORMATION
  Report Type: Spontaneous
  Country: IT (occurrence: IT)
  Receive Date: 20231206
  Receipt Date: 20231206
  Transmission Date: 20240110
  Serious: Yes (Other)
  Sender: FDA-Public Use
  Company Number: IT-002147023-NVSC2023IT255090

PATIENT
  Age: 55 Year
  Sex: Female

DRUGS (9)
  1. RIBOCICLIB [Interacting]
     Active Substance: RIBOCICLIB
     Indication: Breast cancer female
     Dosage: 600 MG/DAY FROM DAY 1 TO 21 FOLLOWED BY A 7-DAY BREAK
     Route: 065
     Dates: start: 201905
  2. RIBOCICLIB [Interacting]
     Active Substance: RIBOCICLIB
     Indication: Metastases to bone
     Dosage: 400 MG, QD
     Route: 065
  3. RIBOCICLIB [Interacting]
     Active Substance: RIBOCICLIB
     Indication: HER2 negative breast cancer
  4. LETROZOLE [Suspect]
     Active Substance: LETROZOLE
     Indication: Breast cancer female
     Dosage: 2.5 MG, QD
     Route: 065
     Dates: start: 201905
  5. LETROZOLE [Suspect]
     Active Substance: LETROZOLE
     Indication: Metastases to bone
  6. LETROZOLE [Suspect]
     Active Substance: LETROZOLE
     Indication: HER2 negative breast cancer
  7. DIOSMIN [Interacting]
     Active Substance: DIOSMIN
     Indication: Neutropenia
     Dosage: UNK
     Route: 065
  8. ESCIN [Interacting]
     Active Substance: ESCIN
     Indication: Neutropenia
     Dosage: UNK
     Route: 065
  9. DIETARY SUPPLEMENT\RESVERATROL [Interacting]
     Active Substance: DIETARY SUPPLEMENT\RESVERATROL
     Indication: Neutropenia
     Dosage: UNK
     Route: 065

REACTIONS (3)
  - Neutropenia [Recovering/Resolving]
  - Drug interaction [Unknown]
  - Oedema peripheral [Unknown]

NARRATIVE: CASE EVENT DATE: 20201012
